FAERS Safety Report 5813882-3 (Version None)
Quarter: 2008Q3

REPORT INFORMATION
  Report Type: 
  Country: None (occurrence: None)
  Receive Date: 20080717
  Receipt Date: 20080714
  Transmission Date: 20090109
  Serious: Yes (Hospitalization)
  Sender: FDA-Public Use
  Company Number: US-GENENTECH-264429

PATIENT
  Sex: Female
  Weight: 85.714 kg

DRUGS (2)
  1. HERCEPTIN [Suspect]
     Indication: BREAST CANCER
     Dosage: 176 MG, 1/WEEK
     Route: 042
     Dates: start: 20080609
  2. DOCETAXEL [Concomitant]
     Indication: BREAST CANCER

REACTIONS (1)
  - COLITIS [None]
